FAERS Safety Report 8240770-8 (Version None)
Quarter: 2012Q1

REPORT INFORMATION
  Report Type: 
  Country: None (occurrence: None)
  Receive Date: 20120328
  Receipt Date: 20120320
  Transmission Date: 20120608
  Serious: Yes (Hospitalization, Other)
  Sender: FDA-Public Use
  Company Number: PHHY2011US63361

PATIENT
  Sex: Female

DRUGS (6)
  1. VITAMINS NOS [Concomitant]
  2. CALCIUM CARBONATE [Concomitant]
  3. LYRICA [Suspect]
  4. ZETIA [Suspect]
  5. PLAVIX [Concomitant]
  6. EXFORGE [Suspect]
     Dosage: 160 MG OF VALS AND 05 MG OF AMLO, ONCE DAILY

REACTIONS (10)
  - CEREBROVASCULAR ACCIDENT [None]
  - AMNESIA [None]
  - FALL [None]
  - PNEUMONIA [None]
  - PAIN IN EXTREMITY [None]
  - BURNING SENSATION [None]
  - WEIGHT DECREASED [None]
  - BACK PAIN [None]
  - GAIT DISTURBANCE [None]
  - ANKLE FRACTURE [None]
